FAERS Safety Report 5280615-1 (Version None)
Quarter: 2007Q1

REPORT INFORMATION
  Report Type: 
  Country: None (occurrence: None)
  Receive Date: 20061215
  Receipt Date: 20060928
  Transmission Date: 20070707
  Serious: Yes (Hospitalization)
  Sender: FDA-Public Use
  Company Number: HQWYE376129SEP06

PATIENT
  Age: 77 Year
  Sex: Female
  Weight: 55.84 kg

DRUGS (7)
  1. EFFEXOR XR [Suspect]
     Indication: DEPRESSION
     Dosage: 75 MG 2X PER 1 DAY, ORAL
     Route: 048
     Dates: start: 20060927, end: 20060927
  2. WELLBUTRIN [Concomitant]
  3. OXYCONTIN [Concomitant]
  4. MYSOLINE [Concomitant]
  5. PROTONIX [Concomitant]
  6. REMERON [Concomitant]
  7. BENTYL [Concomitant]

REACTIONS (1)
  - PAIN [None]
